FAERS Safety Report 7087786-5 (Version None)
Quarter: 2010Q4

REPORT INFORMATION
  Report Type: 
  Country: None (occurrence: None)
  Receive Date: 20101108
  Receipt Date: 20101026
  Transmission Date: 20110411
  Serious: Yes (Other)
  Sender: FDA-Public Use
  Company Number: US-CELGENEUS-163-20785-10102845

PATIENT
  Sex: Female

DRUGS (3)
  1. THALOMID [Suspect]
     Indication: MULTIPLE MYELOMA
     Route: 048
     Dates: start: 20090101
  2. THALOMID [Suspect]
     Route: 048
     Dates: start: 20090101
  3. THALOMID [Suspect]
     Route: 048
     Dates: start: 20100201

REACTIONS (3)
  - DISEASE PROGRESSION [None]
  - FALL [None]
  - PATHOLOGICAL FRACTURE [None]
